FAERS Safety Report 12005728 (Version 1)
Quarter: 2016Q1

REPORT INFORMATION
  Report Type: Spontaneous
  Country: US (occurrence: US)
  Receive Date: 20160205
  Receipt Date: 20160205
  Transmission Date: 20160526
  Serious: No
  Sender: FDA-Public Use
  Company Number: US-SUN PHARMACEUTICAL INDUSTRIES LTD-2004US-00357

PATIENT

DRUGS (1)
  1. ISOTRETINOIN [Suspect]
     Active Substance: ISOTRETINOIN
     Indication: DERMAL CYST
     Dosage: 40 MG, QD
     Route: 048
     Dates: start: 20040507, end: 20040524

REACTIONS (6)
  - Oedema peripheral [Recovering/Resolving]
  - Skin swelling [Recovering/Resolving]
  - Pruritus [Recovering/Resolving]
  - Skin exfoliation [Recovering/Resolving]
  - Seborrhoea [Recovering/Resolving]
  - Hypotrichosis [Not Recovered/Not Resolved]

NARRATIVE: CASE EVENT DATE: 20040507
